FAERS Safety Report 18546212 (Version 1)
Quarter: 2020Q4

REPORT INFORMATION
  Report Type: Spontaneous
  Country: US (occurrence: US)
  Receive Date: 20201125
  Receipt Date: 20201125
  Transmission Date: 20210114
  Serious: Yes (Other)
  Sender: FDA-Public Use
  Company Number: US-PURDUE-USA-2020-0177233

PATIENT
  Sex: Male

DRUGS (5)
  1. OXYCODONE HCL TABLETS (RHODES 91-490) [Suspect]
     Active Substance: OXYCODONE HYDROCHLORIDE
     Indication: PRODUCT USED FOR UNKNOWN INDICATION
     Dosage: UNK
     Route: 048
  2. TRAMADOL. [Suspect]
     Active Substance: TRAMADOL
     Indication: PRODUCT USED FOR UNKNOWN INDICATION
     Dosage: UNK
     Route: 065
  3. OXYCODONE HCL CR TABLETS (SIMILAR TO NDA 22-272) [Suspect]
     Active Substance: OXYCODONE HYDROCHLORIDE
     Indication: PRODUCT USED FOR UNKNOWN INDICATION
     Dosage: UNK
     Route: 048
  4. HYDROCODONE BITARTRATE AND ACETAMINOPHEN [Suspect]
     Active Substance: ACETAMINOPHEN\HYDROCODONE BITARTRATE
     Indication: PRODUCT USED FOR UNKNOWN INDICATION
     Dosage: UNK
     Route: 048
  5. OXYCODONE/ ACETAMINOPHEN TABLETS [Suspect]
     Active Substance: ACETAMINOPHEN\OXYCODONE HYDROCHLORIDE
     Indication: PRODUCT USED FOR UNKNOWN INDICATION
     Dosage: UNK
     Route: 048

REACTIONS (33)
  - Adrenal insufficiency [None]
  - Headache [Unknown]
  - Heart rate increased [Unknown]
  - Visual impairment [Unknown]
  - Decreased appetite [Unknown]
  - Serotonin syndrome [None]
  - Androgen deficiency [Unknown]
  - Neuralgia [Unknown]
  - Blood pressure increased [Unknown]
  - Balance disorder [None]
  - Depression [Unknown]
  - Agitation [Unknown]
  - Abdominal discomfort [Unknown]
  - Fatigue [Unknown]
  - Chest pain [None]
  - Hypopnoea [Unknown]
  - Mood altered [Unknown]
  - Palpitations [None]
  - Pain [Unknown]
  - Asthenia [Unknown]
  - Nerve injury [None]
  - Emotional distress [Unknown]
  - Constipation [Unknown]
  - Sleep apnoea syndrome [Unknown]
  - Fear [Unknown]
  - Libido decreased [None]
  - Cerebral disorder [Unknown]
  - Anxiety [Unknown]
  - Dizziness [Unknown]
  - Hyperhidrosis [Unknown]
  - Drug dependence [Unknown]
  - Insomnia [Unknown]
  - Confusional state [None]
